FAERS Safety Report 6578048-0 (Version None)
Quarter: 2010Q1

REPORT INFORMATION
  Report Type: 
  Country: None (occurrence: None)
  Receive Date: 20100211
  Receipt Date: 20100208
  Transmission Date: 20100710
  Serious: Yes (Hospitalization)
  Sender: FDA-Public Use
  Company Number: FR-ROXANE LABORATORIES, INC.-2010-RO-00134RO

PATIENT
  Age: 53 Year
  Sex: Female

DRUGS (10)
  1. AZATHIOPRINE [Suspect]
     Indication: CROHN'S DISEASE
  2. SALAZOPYRINE [Suspect]
     Indication: CROHN'S DISEASE
  3. MESALAZINE [Suspect]
     Indication: CROHN'S DISEASE
  4. RITUXIMAB [Concomitant]
     Dosage: 600 MG
  5. RITUXIMAB [Concomitant]
  6. ETOPOSIDE [Concomitant]
     Dosage: 150 MG
  7. METHOTREXATE [Concomitant]
     Indication: CROHN'S DISEASE
  8. METHOTREXATE [Concomitant]
  9. METHYLPREDNISOLONE [Concomitant]
     Route: 042
  10. IMMU-G [Concomitant]
     Route: 042

REACTIONS (6)
  - BLOOD TRIGLYCERIDES INCREASED [None]
  - EPSTEIN-BARR VIRUS ASSOCIATED LYMPHOPROLIFERATIVE DISORDER [None]
  - HISTIOCYTOSIS HAEMATOPHAGIC [None]
  - INAPPROPRIATE ANTIDIURETIC HORMONE SECRETION [None]
  - PANCYTOPENIA [None]
  - SERUM FERRITIN INCREASED [None]
